FAERS Safety Report 8416158-3 (Version None)
Quarter: 2012Q2

REPORT INFORMATION
  Report Type: 
  Country: None (occurrence: None)
  Receive Date: 20120530
  Receipt Date: 20120514
  Transmission Date: 20120825
  Serious: Yes (Life-Threatening)
  Sender: FDA-Public Use
  Company Number: 2012CP000063

PATIENT
  Age: 83 Year
  Sex: Female

DRUGS (3)
  1. FLOXACILLIN SODIUM [Suspect]
  2. ACETAMINOPHEN [Suspect]
     Indication: BACK PAIN
  3. ACETAMINOPHEN [Suspect]
     Indication: BACK PAIN
     Dosage: IV
     Route: 042

REACTIONS (7)
  - PARASPINAL ABSCESS [None]
  - TACHYPNOEA [None]
  - METABOLIC ACIDOSIS [None]
  - ALCOHOL USE [None]
  - MALNUTRITION [None]
  - BACTERAEMIA [None]
  - EXTRADURAL ABSCESS [None]
